FAERS Safety Report 23570004 (Version 2)
Quarter: 2024Q2

REPORT INFORMATION
  Report Type: Spontaneous
  Country: US (occurrence: US)
  Receive Date: 20240227
  Receipt Date: 20240610
  Transmission Date: 20240716
  Serious: No
  Sender: FDA-Public Use
  Company Number: US-KYOWAKIRIN-2024KK003072

PATIENT

DRUGS (1)
  1. NOURIANZ [Suspect]
     Active Substance: ISTRADEFYLLINE
     Indication: Parkinson^s disease
     Dosage: 20 MG, QD
     Route: 048
     Dates: start: 20210604

REACTIONS (5)
  - Disease progression [Unknown]
  - Sleep disorder [Unknown]
  - Somnolence [Unknown]
  - Shoulder operation [Unknown]
  - Product dose omission issue [Unknown]
